FAERS Safety Report 5704770-1 (Version None)
Quarter: 2008Q2

REPORT INFORMATION
  Report Type: 
  Country: None (occurrence: None)
  Receive Date: 20080410
  Receipt Date: 20080325
  Transmission Date: 20081010
  Serious: Yes (Hospitalization)
  Sender: FDA-Public Use
  Company Number: 08US001062

PATIENT
  Sex: Female
  Weight: 113.4 kg

DRUGS (1)
  1. LITHOBID [Suspect]
     Indication: BIPOLAR DISORDER
     Dates: start: 19900101

REACTIONS (3)
  - DYSGRAPHIA [None]
  - MENTAL DISORDER [None]
  - RESTLESSNESS [None]
